FAERS Safety Report 9576697 (Version 1)
Quarter: 2013Q4

REPORT INFORMATION
  Report Type: Spontaneous
  Country: US (occurrence: US)
  Receive Date: 20131001
  Receipt Date: 20131001
  Transmission Date: 20140711
  Serious: No
  Sender: FDA-Public Use
  Company Number: US-AMGEN-USASP2013004019

PATIENT
  Sex: Female
  Weight: 86.17 kg

DRUGS (6)
  1. ENBREL [Suspect]
     Indication: RHEUMATOID ARTHRITIS
     Dosage: 25 MG, 2 TIMES/WK
     Route: 058
  2. MELOXICAM [Concomitant]
     Dosage: 15 MG, UNK
  3. PRILOSEC                           /00661201/ [Concomitant]
     Dosage: 20 MG, UNK
  4. ARIMIDEX [Concomitant]
     Dosage: 1 MG, UNK
  5. VITAMIN D                          /00107901/ [Concomitant]
     Dosage: 1000 UNIT, UNK
  6. CALCIUM D                          /00944201/ [Concomitant]
     Dosage: UNK

REACTIONS (1)
  - Injection site pain [Unknown]
